FAERS Safety Report 4993885-1 (Version None)
Quarter: 2006Q2

REPORT INFORMATION
  Report Type: 
  Country: None (occurrence: None)
  Receive Date: 20060505
  Receipt Date: 20060427
  Transmission Date: 20061013
  Serious: Yes (Death)
  Sender: FDA-Public Use
  Company Number: US-JNJFOC-20060406159

PATIENT

DRUGS (17)
  1. REMICADE [Suspect]
     Route: 042
  2. REMICADE [Suspect]
     Indication: DRUG USE FOR UNKNOWN INDICATION
     Dosage: 300-600 MG; 18 TOTAL INFUSIONS
     Route: 042
  3. CALCIUM GLUCONATE [Concomitant]
  4. VITAMIN D [Concomitant]
     Dosage: DOSE: 50000 U MONTHLY
  5. METHOTREXATE [Concomitant]
     Dosage: 3 WEEKLY
  6. SEREVENT [Concomitant]
     Route: 055
  7. PREDNISONE TAB [Concomitant]
  8. ULTRAM [Concomitant]
  9. ALBUTEROL [Concomitant]
  10. ACTONEL [Concomitant]
  11. PROTONIX [Concomitant]
  12. POTASSIUM [Concomitant]
  13. ATACAND [Concomitant]
  14. WARFARIN SODIUM [Concomitant]
  15. FUROSEMIDE [Concomitant]
  16. TRIMETHOBENZAMIDE [Concomitant]
     Dosage: PRN
  17. MECLIZINE [Concomitant]

REACTIONS (1)
  - LUNG SQUAMOUS CELL CARCINOMA STAGE UNSPECIFIED [None]
